FAERS Safety Report 4558838-6 (Version None)
Quarter: 2005Q1

REPORT INFORMATION
  Report Type: 
  Country: None (occurrence: None)
  Receive Date: 20050121
  Receipt Date: 20050118
  Transmission Date: 20050727
  Serious: Yes (Hospitalization)
  Sender: FDA-Public Use
  Company Number: NL-GLAXOSMITHKLINE-B0365220A

PATIENT
  Age: 41 Year
  Sex: Female

DRUGS (1)
  1. AMOXICILLIN TRIHYDRATE + POTASSIUM CLAVULANATE [Suspect]
     Dosage: 1TAB THREE TIMES PER DAY
     Route: 065
     Dates: start: 20041230, end: 20041231

REACTIONS (2)
  - DYSPNOEA [None]
  - RASH ERYTHEMATOUS [None]
